FAERS Safety Report 26115904 (Version 1)
Quarter: 2025Q4

REPORT INFORMATION
  Report Type: Spontaneous
  Country: ZA (occurrence: ZA)
  Receive Date: 20251203
  Receipt Date: 20251203
  Transmission Date: 20260117
  Serious: Yes (Hospitalization, Disabling, Other)
  Sender: Haleon PLC
  Company Number: ZA-HALEON-2276465

PATIENT
  Sex: Male

DRUGS (3)
  1. ACETAMINOPHEN\ASPIRIN\CAFFEINE [Suspect]
     Active Substance: ACETAMINOPHEN\ASPIRIN\CAFFEINE
     Indication: Headache
     Dosage: DOSE: MULTIPLE SACHETS DAILY FOR MANY YEARS
  2. ACETAMINOPHEN\ASPIRIN\CAFFEINE [Suspect]
     Active Substance: ACETAMINOPHEN\ASPIRIN\CAFFEINE
     Indication: Discomfort
  3. ACETAMINOPHEN\ASPIRIN\CAFFEINE [Suspect]
     Active Substance: ACETAMINOPHEN\ASPIRIN\CAFFEINE
     Indication: Pain

REACTIONS (14)
  - Gastrointestinal haemorrhage [Recovering/Resolving]
  - Gastrointestinal ulcer [Recovering/Resolving]
  - Medication overuse headache [Recovering/Resolving]
  - Liver disorder [Recovering/Resolving]
  - Drug dependence [Recovering/Resolving]
  - Pain [Recovering/Resolving]
  - Toxicity to various agents [Unknown]
  - Gastrointestinal tract irritation [Recovering/Resolving]
  - Internal haemorrhage [Recovering/Resolving]
  - Renal disorder [Recovering/Resolving]
  - Weight fluctuation [Recovering/Resolving]
  - General physical health deterioration [Recovering/Resolving]
  - Overdose [Unknown]
  - Wrong technique in product usage process [Unknown]
